FAERS Safety Report 23647228 (Version 1)
Quarter: 2024Q1

REPORT INFORMATION
  Report Type: Spontaneous
  Country: JP (occurrence: JP)
  Receive Date: 20240319
  Receipt Date: 20240319
  Transmission Date: 20240410
  Serious: Yes (Other)
  Sender: FDA-Public Use
  Company Number: JP-CHEPLA-2024003351

PATIENT
  Age: 4 Decade
  Sex: Female

DRUGS (1)
  1. VALGANCICLOVIR [Suspect]
     Active Substance: VALGANCICLOVIR
     Indication: Cytomegalovirus test

REACTIONS (5)
  - Cytomegalovirus chorioretinitis [Recovering/Resolving]
  - Cytomegalovirus enterocolitis [Unknown]
  - Cytomegalovirus viraemia [Unknown]
  - COVID-19 [Unknown]
  - COVID-19 [Recovering/Resolving]
